FAERS Safety Report 9486210 (Version 1)
Quarter: 2013Q3

REPORT INFORMATION
  Report Type: Spontaneous
  Country: US (occurrence: US)
  Receive Date: 20130829
  Receipt Date: 20130829
  Transmission Date: 20140515
  Serious: No
  Sender: FDA-Public Use
  Company Number: US-PFIZER INC-2013245313

PATIENT
  Age: 65 Year
  Sex: Female
  Weight: 85.26 kg

DRUGS (16)
  1. ARTHROTEC [Suspect]
     Indication: OSTEOARTHRITIS
     Dosage: 75 MG, 2X/DAY
     Dates: start: 2013, end: 201308
  2. LORTAB [Suspect]
     Dosage: UNK
  3. LISINOPRIL [Concomitant]
     Dosage: 20 MG, 2X/DAY
  4. COREG [Concomitant]
     Dosage: 25 MG, 2X/DAY
  5. PAXIL [Concomitant]
     Dosage: 20 MG, 2X/DAY
  6. NEURONTIN [Concomitant]
     Dosage: 400MG (0.5 DF) AT NOON, 800MG OTHER 2 TIMES A DAY
  7. GLUCOPHAGE [Concomitant]
     Dosage: 1000 MG, 2X/DAY
  8. GLIMEPIRIDE [Concomitant]
     Dosage: 2 UG, 2X/DAY
  9. LASIX [Concomitant]
     Dosage: 80 MG, DAILY
  10. NORVASC [Concomitant]
     Dosage: 10 MG, DAILY
  11. PRILOSEC [Concomitant]
     Dosage: 20 MG, DAILY
  12. COZAAR [Concomitant]
     Dosage: 50 MG, 2X/DAY
  13. ALLOPURINOL [Concomitant]
     Dosage: 300 MG, DAILY
  14. ULORIC [Concomitant]
     Dosage: 40 MG, 2X/DAY
  15. VITAMIN B12 [Concomitant]
     Dosage: 1 DF, MONTHLY
  16. AMBIEN [Concomitant]
     Dosage: 35 MG, ONCE WEEKLY

REACTIONS (3)
  - Pain [Unknown]
  - Blood triglycerides increased [Unknown]
  - Blood cholesterol increased [Unknown]
